FAERS Safety Report 6357653-0 (Version None)
Quarter: 2009Q3

REPORT INFORMATION
  Report Type: 
  Country: None (occurrence: None)
  Receive Date: 20090916
  Receipt Date: 20090505
  Transmission Date: 20100115
  Serious: No
  Sender: FDA-Public Use
  Company Number: US-AMGEN-US345745

PATIENT
  Sex: Female

DRUGS (18)
  1. NPLATE [Suspect]
     Indication: IDIOPATHIC THROMBOCYTOPENIC PURPURA
     Route: 065
     Dates: start: 20090423
  2. ARANESP [Concomitant]
  3. PRILOSEC [Concomitant]
  4. METFORMIN HCL [Concomitant]
  5. CELEXA [Concomitant]
  6. COREG [Concomitant]
  7. FERROUS SULFATE TAB [Concomitant]
  8. FOLIC ACID [Concomitant]
  9. MULTI-VITAMINS [Concomitant]
  10. ACIDOPHILUS [Concomitant]
     Route: 065
  11. LASIX [Concomitant]
     Route: 065
  12. SYNTHROID [Concomitant]
     Route: 065
  13. ALLOPURINOL [Concomitant]
     Route: 065
  14. K-DUR [Concomitant]
     Route: 048
  15. REQUIP [Concomitant]
  16. ZOCOR [Concomitant]
  17. CELEBREX [Concomitant]
  18. VITAMIN B-12 [Concomitant]

REACTIONS (1)
  - VISION BLURRED [None]
